FAERS Safety Report 25023226 (Version 2)
Quarter: 2025Q1

REPORT INFORMATION
  Report Type: Report from Study
  Country: CO (occurrence: CO)
  Receive Date: 20250228
  Receipt Date: 20250305
  Transmission Date: 20250408
  Serious: Yes (Hospitalization, Other)
  Sender: REGENERON
  Company Number: CO-BAYER-2025A015209

PATIENT
  Age: 93 Year
  Sex: Male

DRUGS (2)
  1. EYLEA [Suspect]
     Active Substance: AFLIBERCEPT
     Indication: Neovascular age-related macular degeneration
     Route: 031
     Dates: start: 20240717, end: 20240717
  2. EYLEA [Suspect]
     Active Substance: AFLIBERCEPT
     Route: 031
     Dates: start: 20250120

REACTIONS (20)
  - Pyelonephritis chronic [Unknown]
  - Influenza like illness [Recovered/Resolved]
  - Rhinorrhoea [Recovered/Resolved]
  - Lower respiratory tract congestion [Unknown]
  - Oxygen saturation decreased [Recovering/Resolving]
  - Urinary tract infection [Unknown]
  - Nausea [Not Recovered/Not Resolved]
  - Pyrexia [Recovered/Resolved]
  - Vertigo [Recovered/Resolved]
  - Decreased appetite [Recovered/Resolved]
  - Productive cough [Unknown]
  - Vomiting [Unknown]
  - Weight decreased [Not Recovered/Not Resolved]
  - Abdominal discomfort [Not Recovered/Not Resolved]
  - Illness [Recovered/Resolved]
  - Blood pressure increased [Unknown]
  - Asthenia [Not Recovered/Not Resolved]
  - C-reactive protein increased [Unknown]
  - White blood cell count decreased [Unknown]
  - Dizziness [Not Recovered/Not Resolved]

NARRATIVE: CASE EVENT DATE: 20250108
